FAERS Safety Report 11879735 (Version 2)
Quarter: 2016Q1

REPORT INFORMATION
  Report Type: Report from Study
  Country: US (occurrence: US)
  Receive Date: 20151230
  Receipt Date: 20160211
  Transmission Date: 20160526
  Serious: No
  Sender: FDA-Public Use
  Company Number: US-AEGERION PHARMACEUTICAL INC.-AEGR002309

PATIENT
  Age: 48 Year
  Sex: Male

DRUGS (15)
  1. CRESTOR [Concomitant]
     Active Substance: ROSUVASTATIN CALCIUM
     Indication: HYPERCHOLESTEROLAEMIA
     Dosage: 10 MG, QD
     Route: 048
     Dates: start: 20040519
  2. JUXTAPID [Suspect]
     Active Substance: LOMITAPIDE MESYLATE
     Indication: TYPE IIA HYPERLIPIDAEMIA
     Dosage: 10 MG, QD
     Route: 048
     Dates: start: 20140522
  3. VITAMIN E [Concomitant]
     Active Substance: .ALPHA.-TOCOPHEROL
     Indication: HYPERCHOLESTEROLAEMIA
     Dosage: 1 TABLET, QD
     Route: 048
     Dates: start: 20140811
  4. ASPIRIN. [Concomitant]
     Active Substance: ASPIRIN
     Indication: CORONARY ARTERY DISEASE
     Dosage: 81 MG, QD
     Route: 048
     Dates: start: 20010808
  5. LOVAZA [Concomitant]
     Active Substance: OMEGA-3-ACID ETHYL ESTERS
     Indication: HYPERCHOLESTEROLAEMIA
     Dosage: 1 G, BID
     Route: 048
     Dates: start: 20090529
  6. TAMSULOSIN [Concomitant]
     Active Substance: TAMSULOSIN
     Indication: BLADDER DISORDER
     Dosage: 0.4 MG, QD
     Route: 048
     Dates: start: 20111130
  7. PIROXICAM. [Concomitant]
     Active Substance: PIROXICAM
     Indication: COMPLEX REGIONAL PAIN SYNDROME
     Dosage: 10 MG, QD
     Route: 048
     Dates: start: 20130723
  8. VITAMIN B [Concomitant]
     Active Substance: VITAMIN B
     Indication: PRODUCT USED FOR UNKNOWN INDICATION
  9. CYMBALTA [Concomitant]
     Active Substance: DULOXETINE HYDROCHLORIDE
     Indication: COMPLEX REGIONAL PAIN SYNDROME
     Dosage: 60 MG, QD
     Route: 048
     Dates: start: 20131009
  10. LYRICA [Concomitant]
     Active Substance: PREGABALIN
     Indication: COMPLEX REGIONAL PAIN SYNDROME
     Dosage: 150 MG, QD
     Route: 048
     Dates: start: 20130723
  11. PERCOCET [Concomitant]
     Active Substance: ACETAMINOPHEN\OXYCODONE HYDROCHLORIDE
     Indication: COMPLEX REGIONAL PAIN SYNDROME
     Dosage: 7.5/325 MG, PRN
     Route: 048
     Dates: start: 20130722
  12. ZETIA [Concomitant]
     Active Substance: EZETIMIBE
     Indication: HYPERCHOLESTEROLAEMIA
     Dosage: 10 MG, QD
     Route: 048
     Dates: start: 20050504
  13. OXYMORPHONE [Concomitant]
     Active Substance: OXYMORPHONE
     Indication: COMPLEX REGIONAL PAIN SYNDROME
     Dosage: 10 MG, BID
     Route: 048
     Dates: start: 20140415
  14. BISOPROLOL [Concomitant]
     Active Substance: BISOPROLOL
     Indication: PRODUCT USED FOR UNKNOWN INDICATION
  15. OMEGA 3-6-9 [Concomitant]
     Active Substance: FISH OIL
     Indication: HYPERCHOLESTEROLAEMIA
     Dosage: 1 TABLET, QD
     Route: 048
     Dates: start: 20140429

REACTIONS (5)
  - Alanine aminotransferase increased [Recovered/Resolved]
  - Depression [Not Recovered/Not Resolved]
  - Arthropod bite [Recovered/Resolved]
  - Back pain [Recovered/Resolved]
  - Aspartate aminotransferase increased [Recovered/Resolved]

NARRATIVE: CASE EVENT DATE: 20140911
